FAERS Safety Report 8725777 (Version 2)
Quarter: 2012Q4

REPORT INFORMATION
  Report Type: 
  Country: US (occurrence: US)
  Receive Date: 20120816
  Receipt Date: 20120903
  Transmission Date: 20130627
  Serious: Yes (Hospitalization, Other)
  Sender: FDA-Public Use
  Company Number: US-BIOGENIDEC-2012BI029450

PATIENT
  Age: 53 None
  Sex: Female

DRUGS (1)
  1. AVONEX [Suspect]
     Indication: MULTIPLE SCLEROSIS
     Route: 030
     Dates: start: 20070921

REACTIONS (2)
  - Intervertebral disc degeneration [Recovered/Resolved]
  - Postoperative thrombosis [Recovered/Resolved]
